FAERS Safety Report 16664643 (Version 3)
Quarter: 2020Q2

REPORT INFORMATION
  Report Type: Spontaneous
  Country: US (occurrence: US)
  Receive Date: 20190803
  Receipt Date: 20200619
  Transmission Date: 20200713
  Serious: Yes (Hospitalization, Other)
  Sender: FDA-Public Use
  Company Number: US-SUN PHARMACEUTICAL INDUSTRIES LTD-2019R1-215207

PATIENT
  Age: 91 Year
  Sex: Female

DRUGS (2)
  1. FLECAINIDE ACETATE. [Suspect]
     Active Substance: FLECAINIDE ACETATE
     Indication: ATRIAL FIBRILLATION
     Dosage: 100 MILLIGRAM, BID
     Route: 065
  2. METOPROLOL TARTRATE. [Concomitant]
     Active Substance: METOPROLOL TARTRATE
     Indication: ATRIAL FIBRILLATION
     Dosage: 50 MILLIGRAM, BID
     Route: 065

REACTIONS (11)
  - Cardiogenic shock [Recovered/Resolved]
  - Tachypnoea [Unknown]
  - Encephalopathy [Unknown]
  - Bradycardia [Recovered/Resolved]
  - Visual impairment [Unknown]
  - Condition aggravated [Unknown]
  - Dizziness [Unknown]
  - Hypotension [Unknown]
  - Toxicity to various agents [Unknown]
  - Electrocardiogram QRS complex prolonged [Recovering/Resolving]
  - Syncope [Unknown]
